FAERS Safety Report 6941574-6 (Version None)
Quarter: 2010Q3

REPORT INFORMATION
  Report Type: 
  Country: None (occurrence: None)
  Receive Date: 20100825
  Receipt Date: 20100817
  Transmission Date: 20110219
  Serious: Yes (Hospitalization)
  Sender: FDA-Public Use
  Company Number: US-US-EMD SERONO, INC.-7012919

PATIENT
  Sex: Female

DRUGS (4)
  1. REBIF [Suspect]
     Indication: PRODUCT USED FOR UNKNOWN INDICATION
     Route: 058
     Dates: start: 20080731, end: 20100315
  2. ACETAMINOPHEN [Concomitant]
     Indication: HEADACHE
  3. LIMBITROL DS [Concomitant]
     Indication: MIGRAINE
  4. VIVACTAL [Concomitant]
     Indication: MIGRAINE

REACTIONS (3)
  - INTRACRANIAL HYPOTENSION [None]
  - MIGRAINE [None]
  - POST LUMBAR PUNCTURE SYNDROME [None]
